FAERS Safety Report 5341963-X (Version None)
Quarter: 2007Q2

REPORT INFORMATION
  Report Type: 
  Country: None (occurrence: None)
  Receive Date: 20070601
  Receipt Date: 20070529
  Transmission Date: 20071010
  Serious: Yes (Hospitalization)
  Sender: FDA-Public Use
  Company Number: FI-GENENTECH-242107

PATIENT
  Sex: Male
  Weight: 63.5 kg

DRUGS (7)
  1. RITUXIMAB [Suspect]
     Indication: B-CELL LYMPHOMA
     Dosage: 640 MEQ, UNK
     Route: 042
     Dates: start: 20070425
  2. CYCLOPHOSPHAMIDE [Suspect]
     Indication: B-CELL LYMPHOMA
     Dosage: 1280 MG, UNK
     Route: 042
     Dates: start: 20070425
  3. DOXORUBICIN HCL [Suspect]
     Indication: B-CELL LYMPHOMA
     Dosage: 85 MG, UNK
     Route: 042
     Dates: start: 20070425
  4. PREDNISONE TAB [Suspect]
     Indication: B-CELL LYMPHOMA
     Dosage: 100 MG, UNK
     Route: 048
     Dates: start: 20070425
  5. PARACETAMOL [Suspect]
     Indication: B-CELL LYMPHOMA
     Dosage: 1000 MG, UNK
     Route: 048
     Dates: start: 20070425
  6. CETIRIZINE HCL [Suspect]
     Indication: B-CELL LYMPHOMA
     Dosage: 10 MG, UNK
     Route: 048
     Dates: start: 20070425
  7. VINCRISTINE [Suspect]
     Indication: B-CELL LYMPHOMA
     Dosage: 2 MG, UNK
     Route: 042
     Dates: start: 20070425

REACTIONS (3)
  - FEBRILE NEUTROPENIA [None]
  - LEUKOPENIA [None]
  - SINUSITIS [None]
